FAERS Safety Report 22679444 (Version 2)
Quarter: 2025Q2

REPORT INFORMATION
  Report Type: Spontaneous
  Country: PE (occurrence: PE)
  Receive Date: 20230707
  Receipt Date: 20250521
  Transmission Date: 20250716
  Serious: Yes (Other)
  Sender: AUROBINDO
  Company Number: PE-AUROBINDO-AUR-APL-2023-046149

PATIENT
  Age: 62 Year
  Sex: Male

DRUGS (8)
  1. ERTAPENEM [Suspect]
     Active Substance: ERTAPENEM
     Indication: Infection
     Dosage: 1 GRAM, ONCE A DAY
     Route: 065
  2. AZATHIOPRINE [Suspect]
     Active Substance: AZATHIOPRINE
     Indication: Colitis ulcerative
     Dosage: 150 MILLIGRAM, ONCE A DAY
     Route: 065
  3. CEFTRIAXONE [Suspect]
     Active Substance: CEFTRIAXONE
     Indication: Intervertebral discitis
     Dosage: 2 GRAM, ONCE A DAY(FOR 6 WEEKS)
     Route: 065
  4. MESALAMINE [Suspect]
     Active Substance: MESALAMINE
     Indication: Colitis ulcerative
     Route: 065
  5. PREDNISONE [Suspect]
     Active Substance: PREDNISONE
     Indication: Colitis ulcerative
     Dosage: 50 MILLIGRAM, ONCE A DAY
     Route: 065
  6. PREDNISONE [Suspect]
     Active Substance: PREDNISONE
     Dosage: 20 MILLIGRAM, ONCE A DAY(TAPERED)
     Route: 065
  7. VANCOMYCIN [Concomitant]
     Active Substance: VANCOMYCIN
     Indication: Product used for unknown indication
     Route: 065
  8. MEROPENEM [Concomitant]
     Active Substance: MEROPENEM
     Indication: Product used for unknown indication
     Route: 065

REACTIONS (1)
  - Infective aneurysm [Unknown]
